FAERS Safety Report 6511970-X (Version None)
Quarter: 2009Q4

REPORT INFORMATION
  Report Type: 
  Country: None (occurrence: None)
  Receive Date: 20091222
  Receipt Date: 20090619
  Transmission Date: 20100525
  Serious: No
  Sender: FDA-Public Use
  Company Number: US-ASTRAZENECA-2009UW16222

PATIENT

DRUGS (6)
  1. CRESTOR [Suspect]
     Route: 048
     Dates: start: 20080101, end: 20080101
  2. CRESTOR [Suspect]
     Route: 048
     Dates: start: 20090101
  3. CRESTOR [Suspect]
     Route: 048
     Dates: start: 20090101
  4. CRESTOR [Suspect]
     Route: 048
     Dates: start: 20090101
  5. TRENTAL [Concomitant]
  6. FISH OIL [Concomitant]

REACTIONS (10)
  - FATIGUE [None]
  - HYPERTENSION [None]
  - ILL-DEFINED DISORDER [None]
  - INFLAMMATION [None]
  - INSOMNIA [None]
  - JOINT SWELLING [None]
  - LISTLESS [None]
  - MYALGIA [None]
  - SKIN LESION [None]
  - VOMITING [None]
